FAERS Safety Report 15607644 (Version 3)
Quarter: 2018Q4

REPORT INFORMATION
  Report Type: Report from Study
  Country: US (occurrence: US)
  Receive Date: 20181112
  Receipt Date: 20181126
  Transmission Date: 20190205
  Serious: Yes (Death, Hospitalization)
  Sender: FDA-Public Use
  Company Number: US-TAKEDA-2018TUS032244

PATIENT
  Age: 54 Year
  Sex: Male

DRUGS (1)
  1. BRIGATINIB [Suspect]
     Active Substance: BRIGATINIB
     Indication: LUNG NEOPLASM MALIGNANT
     Dosage: 180 MG, QD
     Route: 048
     Dates: start: 201806

REACTIONS (2)
  - Laryngitis [Unknown]
  - Death [Fatal]

NARRATIVE: CASE EVENT DATE: 20181101
